FAERS Safety Report 17943360 (Version 9)
Quarter: 2022Q3

REPORT INFORMATION
  Report Type: Spontaneous
  Country: US (occurrence: US)
  Receive Date: 20200625
  Receipt Date: 20220805
  Transmission Date: 20221027
  Serious: Yes (Hospitalization, Other)
  Sender: FDA-Public Use
  Company Number: US-PFIZER INC-2020245116

PATIENT
  Age: 84 Year
  Sex: Female

DRUGS (1)
  1. IBRANCE [Suspect]
     Active Substance: PALBOCICLIB
     Indication: Breast cancer female
     Dosage: 100 MG

REACTIONS (13)
  - Abdominal pain [Unknown]
  - Neuropathy peripheral [Unknown]
  - Fall [Unknown]
  - Facial bones fracture [Unknown]
  - Concussion [Unknown]
  - Neoplasm progression [Unknown]
  - Diarrhoea [Recovering/Resolving]
  - Hypersomnia [Unknown]
  - Depression [Unknown]
  - Inflammation [Unknown]
  - Ulcer [Unknown]
  - Dysphonia [Unknown]
  - Asthenia [Unknown]

NARRATIVE: CASE EVENT DATE: 20210401
